FAERS Safety Report 8810967 (Version 1)
Quarter: 2012Q4

REPORT INFORMATION
  Report Type: 
  Country: US (occurrence: US)
  Receive Date: 20120927
  Receipt Date: 20120927
  Transmission Date: 20130627
  Serious: Yes (Other)
  Sender: FDA-Public Use
  Company Number: US-JNJFOC-20120909808

PATIENT

DRUGS (16)
  1. ABCIXIMAB [Suspect]
     Indication: MYOCARDIAL INFARCTION
     Dosage: infusion (maximum 10ug/min)
     Route: 042
  2. ABCIXIMAB [Suspect]
     Indication: MYOCARDIAL INFARCTION
     Dosage: bolus
     Route: 042
  3. ABCIXIMAB [Suspect]
     Indication: PERCUTANEOUS CORONARY INTERVENTION
     Dosage: infusion (maximum 10ug/min)
     Route: 042
  4. ABCIXIMAB [Suspect]
     Indication: PERCUTANEOUS CORONARY INTERVENTION
     Dosage: bolus
     Route: 042
  5. ASPIRIN [Suspect]
     Indication: MYOCARDIAL INFARCTION
     Dosage: 100 to 324mg
     Route: 065
  6. ASPIRIN [Suspect]
     Indication: MYOCARDIAL INFARCTION
     Dosage: 100 to 324mg orally or 500 mg intravenously
     Route: 065
  7. ASPIRIN [Suspect]
     Indication: PERCUTANEOUS CORONARY INTERVENTION
     Dosage: 100 to 324mg orally or 500 mg intravenously
     Route: 065
  8. ASPIRIN [Suspect]
     Indication: PERCUTANEOUS CORONARY INTERVENTION
     Dosage: 100 to 324mg
     Route: 065
  9. HEPARIN [Suspect]
     Indication: MYOCARDIAL INFARCTION
     Dosage: bolus
     Route: 040
  10. HEPARIN [Suspect]
     Indication: PERCUTANEOUS CORONARY INTERVENTION
     Dosage: bolus
     Route: 040
  11. CLOPIDOGREL [Suspect]
     Indication: MYOCARDIAL INFARCTION
     Dosage: mandated for more than or equal to 6 months after discharge
     Route: 065
  12. CLOPIDOGREL [Suspect]
     Indication: MYOCARDIAL INFARCTION
     Dosage: initial loading dose of equal to or greater than 300 mg
     Route: 065
  13. CLOPIDOGREL [Suspect]
     Indication: PERCUTANEOUS CORONARY INTERVENTION
     Dosage: initial loading dose of equal to or greater than 300 mg
     Route: 065
  14. CLOPIDOGREL [Suspect]
     Indication: PERCUTANEOUS CORONARY INTERVENTION
     Dosage: mandated for more than or equal to 6 months after discharge
     Route: 065
  15. UNSPECIFIED INGREDIENT [Suspect]
     Indication: MYOCARDIAL INFARCTION
     Dosage: 300 vs 600 mg
     Route: 065
  16. UNSPECIFIED INGREDIENT [Suspect]
     Indication: PERCUTANEOUS CORONARY INTERVENTION
     Dosage: 300 vs 600 mg
     Route: 065

REACTIONS (1)
  - Thrombosis in device [Unknown]
